FAERS Safety Report 6529039-7 (Version None)
Quarter: 2009Q4

REPORT INFORMATION
  Report Type: 
  Country: None (occurrence: None)
  Receive Date: 20091231
  Receipt Date: 20091229
  Transmission Date: 20100525
  Serious: Yes (Death, Life-Threatening, Hospitalization)
  Sender: FDA-Public Use
  Company Number: 2009SP043470

PATIENT
  Age: 86 Year
  Sex: Female

DRUGS (13)
  1. ORGARAN [Suspect]
     Indication: DRUG USE FOR UNKNOWN INDICATION
     Dosage: ONCE
     Dates: start: 20090916, end: 20090923
  2. HEPARIN [Suspect]
     Indication: DRUG USE FOR UNKNOWN INDICATION
     Dates: start: 20090909, end: 20090915
  3. HEPARIN [Suspect]
     Indication: DRUG USE FOR UNKNOWN INDICATION
     Dates: start: 20090916, end: 20090916
  4. HEPARIN [Suspect]
     Indication: DRUG USE FOR UNKNOWN INDICATION
     Dates: start: 20090916, end: 20090923
  5. ACEBUTOLOL (CON.) [Concomitant]
  6. COZAAR (CON.) [Concomitant]
  7. BURINEX (CON.) [Concomitant]
  8. DIFFU-K (CON.) [Concomitant]
  9. FENOFIBRATE (CON.) [Concomitant]
  10. MONOCRIXO (CON.) [Concomitant]
  11. OMEPRAZOLE (CON.) [Concomitant]
  12. TANAKAN (CON.) [Concomitant]
  13. PARACETAMOL (CON.) [Concomitant]

REACTIONS (5)
  - CONDITION AGGRAVATED [None]
  - DEEP VEIN THROMBOSIS [None]
  - HEPARIN-INDUCED THROMBOCYTOPENIA [None]
  - MULTI-ORGAN FAILURE [None]
  - PERIPHERAL ISCHAEMIA [None]
